FAERS Safety Report 15266552 (Version 4)
Quarter: 2018Q3

REPORT INFORMATION
  Report Type: Spontaneous
  Country: FR (occurrence: FR)
  Receive Date: 20180810
  Receipt Date: 20180823
  Transmission Date: 20181010
  Serious: Yes (Other)
  Sender: FDA-Public Use
  Company Number: PHHY2018FR027870

PATIENT
  Age: 14 Year
  Sex: Male

DRUGS (10)
  1. ETOPOSIDE. [Concomitant]
     Active Substance: ETOPOSIDE
     Dosage: FROM DAY 1 TO DAY 4 (WEEKS 4 AND 9)
     Route: 065
  2. TRAMADOL. [Interacting]
     Active Substance: TRAMADOL
     Indication: PRODUCT USED FOR UNKNOWN INDICATION
     Route: 065
  3. UROMITEXAN [Concomitant]
     Active Substance: MESNA
     Indication: OSTEOSARCOMA
     Dosage: FROM DAY 1 TO DAY 4 (WEEKS 4 AND 9) IN A 13?WEEK CHEMOTHERAPY, ADMINISTERED ON DAY 12
     Route: 065
  4. ONDANSETRON [Suspect]
     Active Substance: ONDANSETRON
     Indication: PROPHYLAXIS OF NAUSEA AND VOMITING
     Route: 065
  5. ETOPOSIDE. [Concomitant]
     Active Substance: ETOPOSIDE
     Indication: OSTEOSARCOMA
     Dosage: 75 MG/M2, QD, FROM DAY 1 TO DAY 4 (WEEKS 4 AND 9) IN A 13?WEEK CHEMOTHERAPY, ADMINISTERED ON DAY 12
     Route: 065
  6. UROMITEXAN [Concomitant]
     Active Substance: MESNA
     Dosage: FROM DAY 1 TO DAY 4 (WEEKS 4 AND 9).
     Route: 065
  7. METHOTREXATE. [Concomitant]
     Active Substance: METHOTREXATE
     Indication: OSTEOSARCOMA
     Dosage: 12 G/M2, QW
     Route: 065
  8. IFOSFAMIDE. [Interacting]
     Active Substance: IFOSFAMIDE
     Indication: OSTEOSARCOMA
     Dosage: 3 G, QD (3? HOUR INFUSION)
     Route: 042
  9. METHOTREXATE. [Concomitant]
     Active Substance: METHOTREXATE
     Dosage: 12 G, QD
     Route: 042
  10. MORPHINE [Concomitant]
     Active Substance: MORPHINE
     Indication: PRODUCT USED FOR UNKNOWN INDICATION
     Dosage: UNK
     Route: 065

REACTIONS (5)
  - Product use in unapproved indication [Unknown]
  - Drug interaction [Recovered/Resolved]
  - Hepatic function abnormal [Unknown]
  - Encephalopathy [Recovered/Resolved]
  - Disorientation [Recovered/Resolved]
